FAERS Safety Report 15692994 (Version 7)
Quarter: 2019Q4

REPORT INFORMATION
  Report Type: Spontaneous
  Country: JP (occurrence: JP)
  Receive Date: 20181206
  Receipt Date: 20191115
  Transmission Date: 20200122
  Serious: Yes (Life-Threatening, Hospitalization, Other)
  Sender: FDA-Public Use
  Company Number: JP-BRISTOL-MYERS SQUIBB COMPANY-BMS-2018-114646

PATIENT
  Age: 67 Year
  Sex: Male

DRUGS (2)
  1. OPDIVO [Suspect]
     Active Substance: NIVOLUMAB
     Indication: METASTATIC RENAL CELL CARCINOMA
     Dosage: 240 MG
     Route: 041
     Dates: start: 20181024, end: 20181127
  2. YERVOY [Suspect]
     Active Substance: IPILIMUMAB
     Indication: METASTATIC RENAL CELL CARCINOMA
     Dosage: 60 MG
     Route: 041
     Dates: start: 20181024, end: 20181127

REACTIONS (6)
  - Disseminated intravascular coagulation [Recovering/Resolving]
  - Sepsis [Unknown]
  - Blood corticotrophin increased [Unknown]
  - Shock [Unknown]
  - Acute kidney injury [Not Recovered/Not Resolved]
  - Pyrexia [Unknown]

NARRATIVE: CASE EVENT DATE: 20181127
